FAERS Safety Report 8325263-1 (Version None)
Quarter: 2012Q2

REPORT INFORMATION
  Report Type: 
  Country: None (occurrence: None)
  Receive Date: 20120501
  Receipt Date: 20120418
  Transmission Date: 20120825
  Serious: Yes (Other)
  Sender: FDA-Public Use
  Company Number: JP-CELGENEUS-087-21660-12023015

PATIENT
  Sex: Female
  Weight: 43 kg

DRUGS (14)
  1. XELODA [Concomitant]
     Route: 065
     Dates: start: 20120330
  2. ABRAXANE [Suspect]
     Route: 065
     Dates: start: 20120210, end: 20120309
  3. LIPITOR [Concomitant]
     Indication: HYPERCHOLESTEROLAEMIA
     Route: 048
  4. ACTONEL [Concomitant]
     Indication: OSTEOPOROSIS
     Route: 048
  5. ABRAXANE [Suspect]
     Route: 065
     Dates: start: 20120127
  6. AMLODIPINE [Concomitant]
     Indication: HYPERTENSION
     Route: 048
  7. LYRICA [Concomitant]
     Indication: PERIPHERAL SENSORY NEUROPATHY
     Route: 048
     Dates: start: 20111104
  8. MILMAG [Concomitant]
     Indication: CONSTIPATION
     Route: 048
     Dates: start: 20111212
  9. ABRAXANE [Suspect]
     Dosage: 132 MILLIGRAM
     Route: 065
     Dates: start: 20111111
  10. MILMAG [Concomitant]
     Indication: CONSTIPATION PROPHYLAXIS
  11. ALFAROL [Concomitant]
     Indication: OSTEOPOROSIS
     Route: 048
  12. ABRAXANE [Suspect]
     Indication: BREAST CANCER METASTATIC
     Dosage: 198 MILLIGRAM
     Route: 050
     Dates: start: 20110708
  13. ABRAXANE [Suspect]
     Dosage: 165 MILLIGRAM
     Route: 065
     Dates: start: 20111014
  14. ZOMETA [Concomitant]
     Indication: METASTASES TO BONE
     Route: 065

REACTIONS (1)
  - MACULAR OEDEMA [None]
